FAERS Safety Report 22334227 (Version 2)
Quarter: 2023Q2

REPORT INFORMATION
  Report Type: Spontaneous
  Country: US (occurrence: US)
  Receive Date: 20230517
  Receipt Date: 20230522
  Transmission Date: 20230721
  Serious: Yes (Other)
  Sender: FDA-Public Use
  Company Number: US-Teikoku Pharma USA-TPU2023-00264

PATIENT
  Sex: Female

DRUGS (8)
  1. LIDODERM [Suspect]
     Active Substance: LIDOCAINE
     Indication: Procedural pain
     Route: 061
     Dates: start: 2013
  2. LIDODERM [Suspect]
     Active Substance: LIDOCAINE
     Indication: Neuropathy peripheral
  3. ENALAPRIL [Concomitant]
     Active Substance: ENALAPRIL
     Route: 048
     Dates: start: 2012
  4. AMLODIPINE [Concomitant]
     Active Substance: AMLODIPINE BESYLATE
     Route: 050
     Dates: start: 2012
  5. SYNTHROID [Concomitant]
     Active Substance: LEVOTHYROXINE SODIUM
     Route: 048
     Dates: start: 2006
  6. PANTOPRAZOLE [Concomitant]
     Active Substance: PANTOPRAZOLE
     Route: 048
  7. trilogy [Concomitant]
     Route: 048
     Dates: start: 2021
  8. Pressure vision [Concomitant]
     Dosage: 1 PILL DAILY
     Route: 048
     Dates: start: 2021

REACTIONS (4)
  - Emphysema [Not Recovered/Not Resolved]
  - Macular degeneration [Not Recovered/Not Resolved]
  - Gastrointestinal disorder [Not Recovered/Not Resolved]
  - COVID-19 [Recovered/Resolved]

NARRATIVE: CASE EVENT DATE: 20200101
